FAERS Safety Report 18579093 (Version 2)
Quarter: 2020Q4

REPORT INFORMATION
  Report Type: Report from Study
  Country: GB (occurrence: GB)
  Receive Date: 20201204
  Receipt Date: 20201209
  Transmission Date: 20210114
  Serious: Yes (Hospitalization)
  Sender: FDA-Public Use
  Company Number: NVSC2020GB321327

PATIENT
  Sex: Female

DRUGS (1)
  1. HYRIMOZ [Suspect]
     Active Substance: ADALIMUMAB-ADAZ
     Indication: CROHN^S DISEASE
     Dosage: 40 MG, Q2W
     Route: 058
     Dates: start: 20190626

REACTIONS (7)
  - Confusional state [Unknown]
  - Pain [Unknown]
  - Crying [Unknown]
  - Depression [Unknown]
  - Hip fracture [Unknown]
  - Feeling abnormal [Unknown]
  - Malaise [Unknown]
